FAERS Safety Report 23080848 (Version 1)
Quarter: 2023Q4

REPORT INFORMATION
  Report Type: Report from Study
  Country: US (occurrence: US)
  Receive Date: 20231018
  Receipt Date: 20231018
  Transmission Date: 20240110
  Serious: Yes (Other)
  Sender: FDA-Public Use
  Company Number: US-JNJFOC-20231032987

PATIENT
  Age: 69 Year
  Sex: Male

DRUGS (10)
  1. RIVAROXABAN [Suspect]
     Active Substance: RIVAROXABAN
     Indication: Atrial fibrillation
     Route: 048
  2. RIVAROXABAN [Suspect]
     Active Substance: RIVAROXABAN
     Indication: Cerebrovascular accident prophylaxis
  3. ALPRAZOLAM [Concomitant]
     Active Substance: ALPRAZOLAM
     Dates: start: 20230313
  4. CARVEDILOL [Concomitant]
     Active Substance: CARVEDILOL
     Dates: start: 20230313
  5. DICYCLOMINE [Concomitant]
     Active Substance: DICYCLOMINE HYDROCHLORIDE
     Dates: start: 20230313
  6. FOLIC ACID [Concomitant]
     Active Substance: FOLIC ACID
     Dates: start: 20230313
  7. LOSARTAN [Concomitant]
     Active Substance: LOSARTAN
     Dates: start: 20230313
  8. PANTOPRAZOLE [Concomitant]
     Active Substance: PANTOPRAZOLE
     Dates: start: 20230313
  9. SILDENAFIL [Concomitant]
     Active Substance: SILDENAFIL
     Dates: start: 20230313
  10. TESTOSTERONE [Concomitant]
     Active Substance: TESTOSTERONE
     Dates: start: 20230313

REACTIONS (1)
  - Product dose omission issue [Unknown]

NARRATIVE: CASE EVENT DATE: 20231013
